FAERS Safety Report 5955976-8 (Version None)
Quarter: 2008Q4

REPORT INFORMATION
  Report Type: 
  Country: None (occurrence: None)
  Receive Date: 20081112
  Receipt Date: 20081015
  Transmission Date: 20090506
  Serious: Yes (Hospitalization)
  Sender: FDA-Public Use
  Company Number: 2008S1018979

PATIENT
  Age: 56 Year
  Sex: Male

DRUGS (9)
  1. FENTANYL-100 [Suspect]
     Indication: PAIN
     Dosage: ORAL
     Route: 048
  2. GABAPENTIN [Suspect]
     Indication: DRUG USE FOR UNKNOWN INDICATION
     Dosage: 300 MG; 3 TIMES A DAY
  3. HALOPERIDOL [Suspect]
     Indication: DRUG USE FOR UNKNOWN INDICATION
  4. HYDROMORPHONE HCL [Suspect]
     Indication: ANALGESIA
     Dosage: 25 MG; DAILY; SUBCUTANEOUS
     Route: 058
  5. MORPHINE [Suspect]
     Indication: ANALGESIA
  6. OXYCONTIN [Suspect]
     Indication: ANALGESIA
     Dosage: 80 MG; TWICE A DAY
  7. PARACETAMOL (PRACETAMOL) [Suspect]
     Indication: DRUG USE FOR UNKNOWN INDICATION
     Dosage: 1 GM; 4 TIMES A DAY;
  8. ALFENTANIL [Concomitant]
  9. HYDROMORPHONE HCL [Concomitant]

REACTIONS (6)
  - BACK PAIN [None]
  - DRUG EFFECT DECREASED [None]
  - DRUG WITHDRAWAL SYNDROME [None]
  - INFECTION [None]
  - RENAL IMPAIRMENT [None]
  - THERAPEUTIC AGENT TOXICITY [None]
